FAERS Safety Report 20696714 (Version 1)
Quarter: 2022Q2

REPORT INFORMATION
  Report Type: Spontaneous
  Country: GB (occurrence: GB)
  Receive Date: 20220411
  Receipt Date: 20220411
  Transmission Date: 20220721
  Serious: Yes (Other)
  Sender: FDA-Public Use
  Company Number: None

PATIENT
  Age: 91 Year
  Sex: Female
  Weight: 40 kg

DRUGS (11)
  1. DOXYCYCLINE [Suspect]
     Active Substance: DOXYCYCLINE
     Dosage: 2 DF, 1X/DAY
     Dates: start: 20220317
  2. DOXYCYCLINE [Suspect]
     Active Substance: DOXYCYCLINE
     Dosage: 1 DF, DAILY
  3. APIXABAN [Concomitant]
     Active Substance: APIXABAN
     Dosage: 1 DF, 2X/DAY
     Dates: start: 20211126, end: 20220317
  4. ATORVASTATIN [Concomitant]
     Active Substance: ATORVASTATIN
     Dosage: 1 DF, 1X/DAY
     Dates: start: 20211126
  5. CETRABEN [LIGHT LIQUID PARAFFIN;WHITE SOFT PARAFFIN] [Concomitant]
     Dosage: UNK, AS NEEDED
     Dates: start: 20211126
  6. CLARITHROMYCIN [Concomitant]
     Active Substance: CLARITHROMYCIN
     Dosage: 1 DF, 2X/DAY
     Dates: start: 20220322
  7. DIGOXIN [Concomitant]
     Active Substance: DIGOXIN
     Dosage: 1 DF, 1X/DAY
     Dates: start: 20211126
  8. FUROSEMIDE [Concomitant]
     Active Substance: FUROSEMIDE
     Dosage: 120 MG, 2X/DAY
     Dates: start: 20211126
  9. INVITA D3 [Concomitant]
     Dosage: 1 DF, 1X/DAY
     Dates: start: 20211126
  10. LANSOPRAZOLE [Concomitant]
     Active Substance: LANSOPRAZOLE
     Dosage: 1 DF, 1X/DAY
     Dates: start: 20211126
  11. WARFARIN SODIUM [Concomitant]
     Active Substance: WARFARIN SODIUM
     Dosage: USE AS DIRECTED
     Dates: start: 20211126

REACTIONS (2)
  - Disorientation [Recovered/Resolved]
  - Dizziness [Recovered/Resolved]

NARRATIVE: CASE EVENT DATE: 20220321
